FAERS Safety Report 18474841 (Version 2)
Quarter: 2021Q1

REPORT INFORMATION
  Report Type: Spontaneous
  Country: DE (occurrence: GB)
  Receive Date: 20201106
  Receipt Date: 20210216
  Transmission Date: 20210419
  Serious: Yes (Other)
  Sender: FDA-Public Use
  Company Number: GB-ELI_LILLY_AND_COMPANY-GB202011001577

PATIENT
  Age: 56 Year
  Sex: Female

DRUGS (11)
  1. ERBITUX [Suspect]
     Active Substance: CETUXIMAB
     Indication: RECTAL CANCER METASTATIC
     Dosage: UNK UNK, 2/M
     Route: 042
     Dates: start: 201810
  2. ONDANSETRON [Concomitant]
     Active Substance: ONDANSETRON
     Indication: PRODUCT USED FOR UNKNOWN INDICATION
     Dosage: 8 MG, UNKNOWN
  3. DEXAMETHASONE. [Concomitant]
     Active Substance: DEXAMETHASONE
     Indication: PRODUCT USED FOR UNKNOWN INDICATION
  4. FOLINIC ACID [Concomitant]
     Active Substance: LEUCOVORIN
     Indication: RECTAL CANCER METASTATIC
     Dosage: UNK
     Route: 042
     Dates: start: 201810, end: 201901
  5. FOLINIC ACID [Concomitant]
     Active Substance: LEUCOVORIN
     Dosage: UNK
     Route: 042
     Dates: start: 202005
  6. 5 FU [Concomitant]
     Active Substance: FLUOROURACIL
     Indication: RECTAL CANCER METASTATIC
     Dosage: UNK
     Route: 042
     Dates: start: 201810, end: 201901
  7. ATROPINE SULPHATE [Concomitant]
     Active Substance: ATROPINE SULFATE
     Indication: PRODUCT USED FOR UNKNOWN INDICATION
     Dosage: 300 MG, UNKNOWN
     Route: 058
  8. ERBITUX [Suspect]
     Active Substance: CETUXIMAB
     Dosage: UNK UNK, 2/M
     Route: 042
     Dates: start: 202005, end: 202009
  9. IRINOTECAN [Concomitant]
     Active Substance: IRINOTECAN
     Indication: RECTAL CANCER METASTATIC
     Dosage: UNK
     Dates: start: 201810, end: 201901
  10. IRINOTECAN [Concomitant]
     Active Substance: IRINOTECAN
     Dosage: UNK
     Route: 042
     Dates: start: 202005
  11. 5 FU [Concomitant]
     Active Substance: FLUOROURACIL
     Dosage: UNK
     Route: 042
     Dates: start: 202005

REACTIONS (2)
  - Pyoderma gangrenosum [Recovering/Resolving]
  - Off label use [Unknown]

NARRATIVE: CASE EVENT DATE: 202007
